FAERS Safety Report 21700042 (Version 1)
Quarter: 2022Q4

REPORT INFORMATION
  Report Type: Spontaneous
  Country: US (occurrence: US)
  Receive Date: 20221208
  Receipt Date: 20221208
  Transmission Date: 20230113
  Serious: Yes (Other)
  Sender: FDA-Public Use
  Company Number: US-UCBSA-2022069217

PATIENT

DRUGS (1)
  1. BRIVIACT [Suspect]
     Active Substance: BRIVARACETAM
     Indication: Product used for unknown indication
     Dosage: 300 MILLIGRAM, ONCE DAILY (QD)
     Dates: start: 20191201

REACTIONS (2)
  - Seizure [Not Recovered/Not Resolved]
  - Inability to afford medication [Unknown]
